FAERS Safety Report 9058487 (Version 3)
Quarter: 2013Q1

REPORT INFORMATION
  Report Type: Spontaneous
  Country: US (occurrence: US)
  Receive Date: 20130211
  Receipt Date: 20130319
  Transmission Date: 20140127
  Serious: Yes (Hospitalization)
  Sender: FDA-Public Use
  Company Number: US-SANOFI-AVENTIS-2013SA011009

PATIENT
  Age: 79 Year
  Sex: Female
  Weight: 77 kg

DRUGS (2)
  1. PLAVIX [Suspect]
     Indication: TRANSIENT ISCHAEMIC ATTACK
     Route: 048
  2. ASPIRIN [Concomitant]

REACTIONS (3)
  - Transient ischaemic attack [Unknown]
  - Off label use [Unknown]
  - Multiple allergies [Unknown]
